FAERS Safety Report 4284948-7 (Version None)
Quarter: 2004Q1

REPORT INFORMATION
  Report Type: 
  Country: None (occurrence: None)
  Receive Date: 20040204
  Receipt Date: 20040129
  Transmission Date: 20041129
  Serious: Yes (Death)
  Sender: FDA-Public Use
  Company Number: PHEH2004US01323

PATIENT
  Age: 64 Year
  Sex: Male
  Weight: 89 kg

DRUGS (4)
  1. SANDOSTATIN [Suspect]
     Indication: CARCINOID SYNDROME
     Dosage: UNK, UNK
  2. ACCUPRIL [Concomitant]
  3. HYDROCHLOROTHIAZIDE [Concomitant]
  4. OXYCONTIN [Concomitant]

REACTIONS (10)
  - ABDOMINAL ABSCESS [None]
  - ANASTOMOTIC LEAK [None]
  - CELLULITIS [None]
  - INTESTINAL FISTULA [None]
  - JEJUNOSTOMY [None]
  - LAPAROTOMY [None]
  - PYREXIA [None]
  - SURGERY [None]
  - WHITE BLOOD CELL COUNT INCREASED [None]
  - WOUND DEBRIDEMENT [None]
